FAERS Safety Report 6781801-1 (Version None)
Quarter: 2010Q2

REPORT INFORMATION
  Report Type: 
  Country: None (occurrence: None)
  Receive Date: 20100621
  Receipt Date: 20100609
  Transmission Date: 20101027
  Serious: Yes (Hospitalization)
  Sender: FDA-Public Use
  Company Number: JP-AMGEN-QUU419408

PATIENT
  Sex: Female
  Weight: 56 kg

DRUGS (20)
  1. ENBREL [Suspect]
     Indication: RHEUMATOID ARTHRITIS
     Route: 058
     Dates: start: 20080318, end: 20080710
  2. ENBREL [Suspect]
     Route: 058
     Dates: start: 20080714, end: 20080829
  3. ENBREL [Suspect]
     Route: 058
     Dates: start: 20080902, end: 20091005
  4. ENBREL [Suspect]
     Route: 058
     Dates: start: 20100107
  5. SULFASALAZINE [Suspect]
     Indication: RHEUMATOID ARTHRITIS
     Route: 048
     Dates: start: 20070904, end: 20080604
  6. METHOTREXATE [Suspect]
     Indication: RHEUMATOID ARTHRITIS
     Route: 048
     Dates: start: 20071020
  7. CODEINE PHOSPHATE [Concomitant]
     Dosage: UNSPECIFIED
     Route: 048
  8. SENEGA [Concomitant]
     Dosage: UNSPECIFIED
     Route: 048
  9. BROCIN [Concomitant]
     Dosage: UNSPECIFIED
     Route: 048
  10. APRICOT KERNEL WATER [Concomitant]
     Dosage: UNSPECIFIED
     Route: 048
  11. PREDONINE [Concomitant]
     Indication: RHEUMATOID ARTHRITIS
     Route: 048
     Dates: start: 20091207, end: 20091208
  12. NICHOLASE [Concomitant]
     Dosage: UNSPECIFIED
     Route: 048
  13. LOXOPROFEN [Concomitant]
     Dosage: UNSPECIFIED
     Route: 048
  14. CYTOTEC [Concomitant]
     Dosage: UNSPECIFIED
     Route: 048
  15. CEFZON [Concomitant]
     Dosage: UNSPECIFIED
     Route: 048
  16. FERROMIA [Concomitant]
  17. EPINASTINE HYDROCHLORIDE [Concomitant]
     Dosage: UNPECIFIED
     Route: 048
  18. BROTIZOLAM [Concomitant]
     Dosage: UNSPECIFIED
     Route: 048
  19. FOLIC ACID [Concomitant]
     Dosage: UNSPECIFIED
     Route: 048
  20. UNSPECIFIED MEDICATION [Concomitant]

REACTIONS (1)
  - JOINT ARTHROPLASTY [None]
